FAERS Safety Report 8504612-5 (Version None)
Quarter: 2012Q3

REPORT INFORMATION
  Report Type: 
  Country: None (occurrence: None)
  Receive Date: 20120711
  Receipt Date: 20120626
  Transmission Date: 20120928
  Serious: Yes (Hospitalization)
  Sender: FDA-Public Use
  Company Number: US-ROCHE-1082041

PATIENT
  Age: 44 Year
  Sex: Male
  Weight: 65.058 kg

DRUGS (40)
  1. SODIUM PHOSPHATE [Concomitant]
     Dates: start: 20111025
  2. SOLU-MEDROL [Concomitant]
     Dates: start: 20111105, end: 20111110
  3. HEPATITIS B IMMUNE GLOBULIN (HUMAN) [Concomitant]
     Dates: start: 20111107, end: 20111112
  4. HALOPERIDOL [Concomitant]
     Dates: start: 20111115, end: 20111115
  5. FENTANYL [Concomitant]
     Dates: start: 20111025, end: 20111109
  6. TACROLIMUS [Suspect]
     Indication: IMMUNOSUPPRESSION
     Route: 048
     Dates: start: 20111105
  7. LACTULOSE [Concomitant]
     Dates: end: 20111103
  8. PRIMAXIN [Concomitant]
     Dates: end: 20111031
  9. NEOMYCIN SULFATE TAB [Concomitant]
     Dates: start: 20111031, end: 20111104
  10. BACTRIM [Concomitant]
     Dates: start: 20111105
  11. ZOSYN [Concomitant]
     Dates: start: 20111106, end: 20111114
  12. ENTECAVIR [Concomitant]
     Dates: start: 20111107
  13. VERSED [Concomitant]
     Dates: start: 20111027
  14. GANCICLOVIR SODIUM [Suspect]
     Indication: PROPHYLAXIS
     Route: 042
     Dates: start: 20111105, end: 20111122
  15. LEVOFLOXACIN [Concomitant]
     Dates: end: 20111031
  16. VANCOMYCIN [Concomitant]
     Dates: start: 20111113, end: 20111113
  17. THIAMINE [Concomitant]
     Dates: end: 20111104
  18. POTASSIUM PHOSPHATES [Concomitant]
     Dates: start: 20111026, end: 20111106
  19. ERYTHROMYCIN [Concomitant]
     Dates: start: 20111031, end: 20111104
  20. MYCOPHENOLATE MOFETIL [Concomitant]
     Dates: start: 20111105
  21. PREDNISONE [Concomitant]
     Dates: start: 20111112
  22. ACTIGALL [Concomitant]
     Dates: start: 20111105
  23. ACETAMINOPHEN [Concomitant]
     Dates: start: 20111107, end: 20111112
  24. HYDROMORPHONE HCL [Concomitant]
     Dates: start: 20111108
  25. ALBUMIN (HUMAN) [Concomitant]
  26. UNASYN [Concomitant]
     Dates: start: 20111105, end: 20111105
  27. THROMBIN NOS [Concomitant]
     Dates: start: 20111116, end: 20111116
  28. GANCICLOVIR SODIUM [Suspect]
     Dates: start: 20111201
  29. DOCUSATE [Concomitant]
     Dates: end: 20111030
  30. RIFAXIMIN [Concomitant]
     Dates: end: 20111105
  31. POTASSIUM CHLORIDE [Concomitant]
     Dates: start: 20111031, end: 20111031
  32. MAGNESIUM SULFATE [Concomitant]
     Dates: start: 20111030, end: 20111211
  33. ZOFRAN [Concomitant]
     Dates: start: 20111104, end: 20111104
  34. OLANZAPINE [Concomitant]
     Dates: start: 20111110
  35. NOREPINEPHRINE [Concomitant]
     Dates: start: 20111024
  36. BLINDED ANIDULAFUNGIN [Suspect]
     Indication: ANTIFUNGAL PROPHYLAXIS
     Dates: start: 20111105
  37. FOLIC ACID [Concomitant]
     Dates: end: 20111104
  38. BENADRYL [Concomitant]
     Dates: start: 20111107, end: 20111114
  39. PANTOPRAZOLE [Concomitant]
  40. INSULIN [Concomitant]
     Dates: start: 20111031

REACTIONS (2)
  - INTRA-ABDOMINAL HAEMORRHAGE [None]
  - MENTAL STATUS CHANGES [None]
